FAERS Safety Report 7654324-5 (Version None)
Quarter: 2011Q3

REPORT INFORMATION
  Report Type: 
  Country: None (occurrence: None)
  Receive Date: 20110803
  Receipt Date: 20110722
  Transmission Date: 20111222
  Serious: Yes (Other)
  Sender: FDA-Public Use
  Company Number: US-JNJFOC-20110710732

PATIENT
  Sex: Male
  Weight: 67.13 kg

DRUGS (7)
  1. REMICADE [Suspect]
     Route: 042
     Dates: start: 20100913
  2. ANTIBIOTICS [Concomitant]
  3. ANTIHISTAMINES [Concomitant]
     Indication: PREMEDICATION
  4. REMICADE [Suspect]
     Indication: CROHN'S DISEASE
     Route: 042
     Dates: start: 20100827
  5. REMICADE [Suspect]
     Route: 042
     Dates: start: 20101011
  6. ACETAMINOPHEN [Concomitant]
     Indication: PREMEDICATION
  7. REMICADE [Suspect]
     Route: 042
     Dates: start: 20101206

REACTIONS (1)
  - HERPES ZOSTER [None]
